FAERS Safety Report 8363132-1 (Version None)
Quarter: 2012Q2

REPORT INFORMATION
  Report Type: 
  Country: None (occurrence: None)
  Receive Date: 20120516
  Receipt Date: 20120502
  Transmission Date: 20120825
  Serious: Yes (Hospitalization)
  Sender: FDA-Public Use
  Company Number: GB-UCBSA-057039

PATIENT
  Age: 62 Year
  Sex: Male
  Weight: 109 kg

DRUGS (6)
  1. HYDROXYCHLOROQUINE SULFATE [Concomitant]
     Route: 048
     Dates: start: 20090901
  2. IBUPROFEN [Concomitant]
     Route: 048
     Dates: start: 20111101
  3. PERINDOPRIL ERBUMINE [Concomitant]
     Route: 048
     Dates: start: 20111101
  4. CLOBETASONE BUTYRATE [Concomitant]
     Route: 061
     Dates: start: 20090101
  5. AZULFIDINE [Concomitant]
     Route: 048
     Dates: start: 20090901
  6. CIMZIA [Suspect]
     Indication: RHEUMATOID ARTHRITIS
     Dosage: 200 MCG
     Route: 042
     Dates: start: 20111229, end: 20111229

REACTIONS (5)
  - HYPOXIA [None]
  - VOMITING [None]
  - RASH [None]
  - HYPERSENSITIVITY [None]
  - NAUSEA [None]
